FAERS Safety Report 9717174 (Version 1)
Quarter: 2013Q4

REPORT INFORMATION
  Report Type: Spontaneous
  Country: US (occurrence: None)
  Receive Date: 20131125
  Receipt Date: 20131125
  Transmission Date: 20140711
  Serious: Yes (Other)
  Sender: FDA-Public Use
  Company Number: 2013-US-003418

PATIENT
  Age: 40 Year
  Sex: Female

DRUGS (3)
  1. XYREM (SODIUM OXYBATE) ORAL SOLUTION, 500MG/ML [Suspect]
     Indication: NARCOLEPSY
     Route: 048
     Dates: start: 200606
  2. PROVIGIL (MODAFINIL) [Concomitant]
  3. VITAMIN B 12 (VITAMIN B NOS) [Concomitant]

REACTIONS (4)
  - Sleep apnoea syndrome [None]
  - Poor quality sleep [None]
  - Cataplexy [None]
  - Somnolence [None]
